FAERS Safety Report 6295900-4 (Version None)
Quarter: 2009Q3

REPORT INFORMATION
  Report Type: 
  Country: None (occurrence: None)
  Receive Date: 20090803
  Receipt Date: 20090803
  Transmission Date: 20100115
  Serious: Yes (Life-Threatening, Hospitalization)
  Sender: FDA-Public Use
  Company Number: None

PATIENT
  Age: 53 Year
  Sex: Female
  Weight: 58 kg

DRUGS (6)
  1. ARAVA [Suspect]
     Indication: RHEUMATOID ARTHRITIS
     Dosage: 20MG DAILY PO
     Route: 048
     Dates: start: 20070101, end: 20090707
  2. PREDNISONE [Concomitant]
  3. ZOLOFT [Concomitant]
  4. SYNTHROID [Concomitant]
  5. MULTI-VITAMIN [Concomitant]
  6. INSULIN [Concomitant]

REACTIONS (7)
  - FOOT AMPUTATION [None]
  - INFECTION [None]
  - LEG AMPUTATION [None]
  - LUNG ABSCESS [None]
  - NAUSEA [None]
  - PULMONARY TUBERCULOSIS [None]
  - STAPHYLOCOCCAL INFECTION [None]
